FAERS Safety Report 5760924-X (Version None)
Quarter: 2008Q2

REPORT INFORMATION
  Report Type: 
  Country: None (occurrence: None)
  Receive Date: 20080606
  Receipt Date: 20080529
  Transmission Date: 20081010
  Serious: Yes (Hospitalization)
  Sender: FDA-Public Use
  Company Number: JP-AMGEN-US236167

PATIENT
  Sex: Female

DRUGS (8)
  1. ENBREL [Suspect]
     Indication: RHEUMATOID ARTHRITIS
     Route: 058
     Dates: start: 20050621, end: 20050802
  2. ENBREL [Suspect]
     Route: 058
     Dates: start: 20050804, end: 20060823
  3. ENBREL [Suspect]
     Route: 058
     Dates: start: 20051220, end: 20070629
  4. PREDONINE [Suspect]
     Indication: RHEUMATOID ARTHRITIS
     Route: 048
     Dates: start: 20061219
  5. SOFALCONE [Concomitant]
     Indication: GASTRITIS PROPHYLAXIS
     Route: 048
     Dates: start: 20040629
  6. RISEDRONATE SODIUM [Concomitant]
     Indication: OSTEOPOROSIS
     Route: 048
     Dates: start: 20040629
  7. INSULIN ASPART [Concomitant]
     Indication: DIABETES MELLITUS
     Dosage: UNKNOWN
     Route: 065
  8. LOXONIN [Concomitant]
     Indication: RHEUMATOID ARTHRITIS
     Route: 048
     Dates: start: 20040629

REACTIONS (1)
  - TUBERCULOUS PLEURISY [None]
